FAERS Safety Report 9081538 (Version 1)
Quarter: 2013Q1

REPORT INFORMATION
  Report Type: Report from Study
  Country: US (occurrence: US)
  Receive Date: 20130130
  Receipt Date: 20130130
  Transmission Date: 20140127
  Serious: No
  Sender: FDA-Public Use
  Company Number: US-ABBOTT-12P-163-0967472-00

PATIENT
  Age: 60 Year
  Sex: Female

DRUGS (7)
  1. HUMIRA 40 MG/0.8 ML PEN [Suspect]
     Indication: CROHN^S DISEASE
     Dates: start: 20120706
  2. HUMIRA 40 MG/0.8 ML PEN [Suspect]
     Dates: start: 201207
  3. HUMIRA 40 MG/0.8 ML PEN [Suspect]
  4. NEXIUM [Suspect]
  5. DILAUDID [Concomitant]
  6. PREDNISONE [Concomitant]
  7. AMITRIPTYLINE [Concomitant]

REACTIONS (4)
  - Contusion [Unknown]
  - Drug ineffective [Not Recovered/Not Resolved]
  - Back pain [Unknown]
  - Ligament sprain [Unknown]
